FAERS Safety Report 24959211 (Version 1)
Quarter: 2025Q1

REPORT INFORMATION
  Report Type: Report from Study
  Country: IT (occurrence: IT)
  Receive Date: 20250212
  Receipt Date: 20250212
  Transmission Date: 20250408
  Serious: Yes (Hospitalization, Other)
  Sender: EMD SERONO INC
  Company Number: IT-Merck Healthcare KGaA-2025006770

PATIENT
  Age: 78 Year
  Sex: Male

DRUGS (4)
  1. METFORMIN HYDROCHLORIDE [Suspect]
     Active Substance: METFORMIN HYDROCHLORIDE
     Indication: Product used for unknown indication
  2. CALCIO CARBONATO [Concomitant]
     Indication: Product used for unknown indication
  3. ROCALTROL [Concomitant]
     Active Substance: CALCITRIOL
     Indication: Product used for unknown indication
  4. LEVOTHYROXINE SODIUM [Concomitant]
     Active Substance: LEVOTHYROXINE SODIUM
     Indication: Product used for unknown indication

REACTIONS (1)
  - Toxicity to various agents [Unknown]

NARRATIVE: CASE EVENT DATE: 20250131
